FAERS Safety Report 9645639 (Version 1)
Quarter: 2013Q4

REPORT INFORMATION
  Report Type: Spontaneous
  Country: US (occurrence: US)
  Receive Date: 20131025
  Receipt Date: 20131025
  Transmission Date: 20140711
  Serious: Yes (Other)
  Sender: FDA-Public Use
  Company Number: US-ENDO PHARMACEUTICALS INC.-CLON20130015

PATIENT
  Sex: Female

DRUGS (2)
  1. CLONIDINE HCL TABLETS 0.1MG [Suspect]
     Indication: HYPERTENSION
     Dosage: UNK
     Route: 048
     Dates: start: 20130822
  2. MICARDIS [Concomitant]
     Indication: HYPERTENSION
     Dosage: UNK
     Route: 065

REACTIONS (4)
  - Blood pressure systolic increased [Unknown]
  - Therapeutic response delayed [Unknown]
  - Bradycardia [Unknown]
  - Condition aggravated [Unknown]
